FAERS Safety Report 13554220 (Version 1)
Quarter: 2017Q2

REPORT INFORMATION
  Report Type: Spontaneous
  Country: US (occurrence: US)
  Receive Date: 20170517
  Receipt Date: 20170517
  Transmission Date: 20170830
  Serious: Yes (Disabling)
  Sender: FDA-Public Use
  Company Number: None

PATIENT
  Age: 80 Year
  Sex: Female
  Weight: 111.13 kg

DRUGS (13)
  1. VALSARTAN + HYDROCHLOROTHIAZIDE [Concomitant]
  2. XARELTO [Concomitant]
     Active Substance: RIVAROXABAN
  3. FOLIC ACID. [Concomitant]
     Active Substance: FOLIC ACID
  4. POTASSIUM CL [Concomitant]
     Active Substance: POTASSIUM CHLORIDE
  5. SOTALOL. [Suspect]
     Active Substance: SOTALOL
     Indication: ATRIAL FIBRILLATION
     Route: 048
     Dates: start: 20160505, end: 201608
  6. LASIX [Concomitant]
     Active Substance: FUROSEMIDE
  7. VITAMIN C [Concomitant]
     Active Substance: ASCORBIC ACID
  8. VITAMIN B12 [Concomitant]
     Active Substance: CYANOCOBALAMIN
  9. DULOXETINE. [Concomitant]
     Active Substance: DULOXETINE
  10. LORAZAPAM [Concomitant]
     Active Substance: LORAZEPAM
  11. CELECOXIB. [Concomitant]
     Active Substance: CELECOXIB
  12. ATORVASTATIN CALCIUM. [Concomitant]
     Active Substance: ATORVASTATIN CALCIUM
  13. VITAMIN D [Concomitant]
     Active Substance: CHOLECALCIFEROL

REACTIONS (5)
  - Peripheral swelling [None]
  - Malaise [None]
  - Vision blurred [None]
  - Dyspnoea [None]
  - Arthralgia [None]

NARRATIVE: CASE EVENT DATE: 20161106
